FAERS Safety Report 8806116 (Version 2)
Quarter: 2013Q1

REPORT INFORMATION
  Report Type: Spontaneous
  Country: US (occurrence: None)
  Receive Date: 20120917
  Receipt Date: 20121113
  Transmission Date: 20140127
  Serious: No
  Sender: FDA-Public Use
  Company Number: 120394

PATIENT
  Age: 60 Year
  Sex: Male
  Weight: 86.18 kg

DRUGS (8)
  1. SUPREP BOWEL PREP [Suspect]
     Indication: COLONOSCOPY
     Dosage: 2 X 6 OZ BOTTLE/1X/PO
     Route: 048
     Dates: start: 20120903, end: 20120904
  2. DICLOFENAC EC (VOLTAREN) [Concomitant]
  3. HYDROCODONE/ACETAMINOPHEN [Concomitant]
  4. TADALAFIL (CIALIS) [Concomitant]
  5. ZOLMITRIPTAN (ZOMIG) [Concomitant]
  6. FLUCINONIDE [Concomitant]
  7. BETAMETHASONE DIPROPIONATE (DIPROSONE) [Concomitant]
  8. CALCIPOTRIENE (DOVONEX) [Concomitant]

REACTIONS (8)
  - Vomiting [None]
  - Feeling abnormal [None]
  - Lethargy [None]
  - Headache [None]
  - Dysphonia [None]
  - Nausea [None]
  - Asthenia [None]
  - Somnolence [None]
